FAERS Safety Report 11941281 (Version 7)
Quarter: 2019Q3

REPORT INFORMATION
  Report Type: Spontaneous
  Country: US (occurrence: US)
  Receive Date: 20160122
  Receipt Date: 20190911
  Transmission Date: 20191004
  Serious: Yes (Hospitalization)
  Sender: FDA-Public Use
  Company Number: US-BIOGEN-2015BI100645

PATIENT
  Age: 63 Year
  Sex: Female
  Weight: 91 kg

DRUGS (6)
  1. TYSABRI [Suspect]
     Active Substance: NATALIZUMAB
     Indication: RELAPSING-REMITTING MULTIPLE SCLEROSIS
     Route: 050
     Dates: start: 20090220, end: 20150619
  2. NUVIGIL [Concomitant]
     Active Substance: ARMODAFINIL
     Indication: PRODUCT USED FOR UNKNOWN INDICATION
     Route: 050
     Dates: start: 20140313
  3. LANTUS [Concomitant]
     Active Substance: INSULIN GLARGINE
     Indication: TYPE 2 DIABETES MELLITUS
     Dosage: 13 U, TID
     Route: 050
  4. TYLENOL 8HR [Concomitant]
     Active Substance: ACETAMINOPHEN
     Indication: PRODUCT USED FOR UNKNOWN INDICATION
     Route: 050
  5. CELEXA [Concomitant]
     Active Substance: CITALOPRAM HYDROBROMIDE
     Indication: DEPRESSION
     Route: 050
     Dates: start: 20150626
  6. LANTUS [Concomitant]
     Active Substance: INSULIN GLARGINE
     Dosage: 18U QHS
     Route: 050

REACTIONS (2)
  - Progressive multifocal leukoencephalopathy [Recovered/Resolved with Sequelae]
  - Diabetes mellitus [Unknown]

NARRATIVE: CASE EVENT DATE: 20150714
